FAERS Safety Report 17753684 (Version 2)
Quarter: 2020Q4

REPORT INFORMATION
  Report Type: Spontaneous
  Country: RU (occurrence: RU)
  Receive Date: 20200507
  Receipt Date: 20201202
  Transmission Date: 20210113
  Serious: Yes (Other)
  Sender: FDA-Public Use
  Company Number: RU-ROCHE-2593834

PATIENT
  Age: 39 Year
  Sex: Female

DRUGS (4)
  1. GAZYVA [Concomitant]
     Active Substance: OBINUTUZUMAB
     Dosage: MAINTENANCE THERAPY
     Dates: start: 201908
  2. GAZYVA [Concomitant]
     Active Substance: OBINUTUZUMAB
     Indication: B-CELL LYMPHOMA
     Dosage: 6 COURSES OF G-B (GAZYVA-BENDAMUSTIN)
     Route: 042
     Dates: start: 201811, end: 201906
  3. GAZYVA [Concomitant]
     Active Substance: OBINUTUZUMAB
     Dosage: G-BEAM REGIMEN
     Dates: start: 201907, end: 201908
  4. RITUXIMAB. [Suspect]
     Active Substance: RITUXIMAB
     Indication: B-CELL LYMPHOMA
     Dosage: 4 COURSES OF R-CHOP
     Route: 065
     Dates: start: 201807, end: 201810

REACTIONS (1)
  - Therapeutic response decreased [Unknown]

NARRATIVE: CASE EVENT DATE: 201811
